FAERS Safety Report 16321232 (Version 1)
Quarter: 2019Q2

REPORT INFORMATION
  Report Type: Spontaneous
  Country: CA (occurrence: CA)
  Receive Date: 20190516
  Receipt Date: 20190516
  Transmission Date: 20190711
  Serious: Yes (Death)
  Sender: FDA-Public Use
  Company Number: CA-TEVA-2019-CA-1048719

PATIENT
  Age: 71 Year
  Sex: Female

DRUGS (10)
  1. FENTANYL. [Suspect]
     Active Substance: FENTANYL
     Indication: PAIN
     Route: 023
  2. METOPROLOL. [Concomitant]
     Active Substance: METOPROLOL
  3. MIRTAZAPINE. [Concomitant]
     Active Substance: MIRTAZAPINE
  4. OXAZEPAM. [Concomitant]
     Active Substance: OXAZEPAM
  5. ACETAMINOPHEN. [Concomitant]
     Active Substance: ACETAMINOPHEN
  6. HYDROMORPHONE [Concomitant]
     Active Substance: HYDROMORPHONE
  7. NORFENTANYL [Concomitant]
     Active Substance: NORFENTANYL
  8. FENTANYL. [Suspect]
     Active Substance: FENTANYL
     Route: 023
  9. DIGOXIN. [Concomitant]
     Active Substance: DIGOXIN
  10. FENTANYL. [Suspect]
     Active Substance: FENTANYL
     Route: 023

REACTIONS (11)
  - Opiates positive [Fatal]
  - Pulmonary oedema [Fatal]
  - Loss of consciousness [Fatal]
  - Accidental overdose [Fatal]
  - Petechiae [Fatal]
  - Postmortem blood drug level increased [Fatal]
  - Cyanosis [Fatal]
  - Pulse absent [Fatal]
  - Product administration error [Fatal]
  - Respiratory depression [Fatal]
  - Ecchymosis [Fatal]
